FAERS Safety Report 10549309 (Version 3)
Quarter: 2014Q4

REPORT INFORMATION
  Report Type: Report from Study
  Country: JP (occurrence: JP)
  Receive Date: 20141028
  Receipt Date: 20141110
  Transmission Date: 20150529
  Serious: Yes (Other)
  Sender: FDA-Public Use
  Company Number: JP-GLAXOSMITHKLINE-A201403354

PATIENT
  Age: 78 Year
  Sex: Male

DRUGS (13)
  1. MENESIT [Concomitant]
     Active Substance: CARBIDOPA\LEVODOPA
     Indication: PARKINSON^S DISEASE
     Dosage: UNK
  2. ACTOS [Concomitant]
     Active Substance: PIOGLITAZONE HYDROCHLORIDE
     Dosage: UNK
  3. MAGMITT [Concomitant]
     Active Substance: MAGNESIUM OXIDE
  4. NEXIUM [Concomitant]
     Active Substance: ESOMEPRAZOLE MAGNESIUM
     Dosage: UNK
     Dates: end: 20140712
  5. FOSAMAC 5MG [Concomitant]
     Dosage: UNK
     Dates: start: 20131024
  6. EQUA [Concomitant]
     Active Substance: VILDAGLIPTIN
     Dosage: UNK
  7. ROPINIROLE HYDROCHLORIDE. [Suspect]
     Active Substance: ROPINIROLE HYDROCHLORIDE
     Indication: PARKINSON^S DISEASE
     Route: 048
     Dates: start: 20130910
  8. REQUIP [Concomitant]
     Active Substance: ROPINIROLE HYDROCHLORIDE
     Indication: PARKINSON^S DISEASE
     Dosage: UNK MG, UNK
  9. EXCEGRAN [Concomitant]
     Active Substance: ZONISAMIDE
     Indication: PARKINSON^S DISEASE
     Dosage: UNK
  10. PURSENNID [Concomitant]
     Active Substance: SENNOSIDES A AND B
     Dosage: UNK
  11. LOXONIN [Concomitant]
     Active Substance: LOXOPROFEN SODIUM
     Dosage: UNK
     Dates: end: 20140710
  12. EDIROL [Concomitant]
     Active Substance: ELDECALCITOL
     Dosage: UNK
     Dates: start: 20131024
  13. UNKNOWN DRUG [Concomitant]
     Active Substance: UNSPECIFIED INGREDIENT
     Route: 048
     Dates: start: 20131024, end: 20131106

REACTIONS (3)
  - Spinal compression fracture [Recovering/Resolving]
  - Mental impairment [Not Recovered/Not Resolved]
  - Cognitive disorder [Not Recovered/Not Resolved]

NARRATIVE: CASE EVENT DATE: 20131001
